FAERS Safety Report 7703106-4 (Version None)
Quarter: 2011Q3

REPORT INFORMATION
  Report Type: 
  Country: None (occurrence: None)
  Receive Date: 20110823
  Receipt Date: 20110816
  Transmission Date: 20111222
  Serious: Yes (Hospitalization)
  Sender: FDA-Public Use
  Company Number: ES-ASTELLAS-2011EU005522

PATIENT
  Age: 6 Year
  Sex: Male

DRUGS (7)
  1. PROGRAF [Suspect]
     Indication: RENAL TRANSPLANT
     Dosage: 3 MG, BID
     Route: 048
     Dates: start: 20101020, end: 20110503
  2. ARANESP [Concomitant]
     Indication: ANAEMIA
     Dosage: 30 UG, OTHER
     Route: 058
     Dates: start: 20101102
  3. MYCOSTATIN [Concomitant]
     Indication: PROPHYLAXIS
     Dosage: 20 MG, QID
     Route: 048
     Dates: start: 20101102
  4. ACFOL [Concomitant]
     Dosage: 5 MG, OTHER
     Route: 048
     Dates: start: 20101102
  5. SEPTRIN PAEDIATRIC [Concomitant]
     Indication: PROPHYLAXIS
     Dosage: 36 ML, 3XWEEKLY
     Route: 048
     Dates: start: 20101102
  6. BICARBONATE [Concomitant]
     Indication: RENAL FAILURE CHRONIC
     Dosage: UNK
     Route: 048
     Dates: start: 20101102
  7. DITROPAN [Concomitant]
     Dosage: 7.5 MG, UID/QD
     Route: 048
     Dates: start: 20101102

REACTIONS (1)
  - FEBRILE NEUTROPENIA [None]
